FAERS Safety Report 12289215 (Version 1)
Quarter: 2016Q2

REPORT INFORMATION
  Report Type: Spontaneous
  Country: US (occurrence: None)
  Receive Date: 20160420
  Receipt Date: 20160420
  Transmission Date: 20160815
  Serious: No
  Sender: FDA-Public Use
  Company Number: None

PATIENT
  Age: 61 Year
  Sex: Female

DRUGS (1)
  1. TOUJEO [Suspect]
     Active Substance: INSULIN GLARGINE

REACTIONS (9)
  - Glycosylated haemoglobin increased [None]
  - Blood glucose increased [None]
  - Needle issue [None]
  - Weight decreased [None]
  - Injection site bruising [None]
  - Visual acuity reduced [None]
  - Hypertension [None]
  - Tendon rupture [None]
  - Injection site pain [None]
